FAERS Safety Report 20798970 (Version 6)
Quarter: 2022Q3

REPORT INFORMATION
  Report Type: Report from Study
  Country: BR (occurrence: BR)
  Receive Date: 20220507
  Receipt Date: 20220801
  Transmission Date: 20221027
  Serious: Yes (Hospitalization, Other)
  Sender: FDA-Public Use
  Company Number: BR-NOVARTISPH-NVSC2022BR104381

PATIENT
  Age: 54 Year
  Sex: Female
  Weight: 169 kg

DRUGS (4)
  1. TAFINLAR [Suspect]
     Active Substance: DABRAFENIB MESYLATE
     Indication: Malignant melanoma
     Dosage: UNK, QD (04 CAPSULES)
     Route: 048
     Dates: start: 20220407, end: 20220417
  2. TAFINLAR [Suspect]
     Active Substance: DABRAFENIB MESYLATE
     Dosage: UNK
     Route: 065
     Dates: start: 20220603
  3. MEKINIST [Suspect]
     Active Substance: TRAMETINIB DIMETHYL SULFOXIDE
     Indication: Malignant melanoma
     Dosage: UNK, QD (01 TABLET)
     Route: 048
     Dates: start: 20220407, end: 20220417
  4. MEKINIST [Suspect]
     Active Substance: TRAMETINIB DIMETHYL SULFOXIDE
     Dosage: UNK
     Route: 065
     Dates: start: 20220603

REACTIONS (14)
  - Liver disorder [Recovering/Resolving]
  - Dehydration [Recovered/Resolved]
  - Renal disorder [Recovered/Resolved]
  - Vomiting [Recovered/Resolved]
  - Headache [Recovered/Resolved]
  - Nausea [Recovered/Resolved]
  - Eye irritation [Not Recovered/Not Resolved]
  - Dysphagia [Unknown]
  - Ageusia [Recovering/Resolving]
  - Hepatic enzyme increased [Unknown]
  - Malaise [Unknown]
  - Rash [Recovering/Resolving]
  - Hypersensitivity [Recovering/Resolving]
  - Illness [Unknown]

NARRATIVE: CASE EVENT DATE: 20220416
